FAERS Safety Report 9341837 (Version 1)
Quarter: 2013Q2

REPORT INFORMATION
  Report Type: Spontaneous
  Country: US (occurrence: None)
  Receive Date: 20130606
  Receipt Date: 20130606
  Transmission Date: 20140414
  Serious: Yes (Other)
  Sender: FDA-Public Use
  Company Number: JPI-P-032333

PATIENT
  Age: 49 Year
  Sex: Female

DRUGS (1)
  1. XYREM (500 MILLIGRAM/ MILLILITERS, SOLUTION) (SODIUM OXYBATE) [Suspect]
     Indication: FIBROMYALGIA
     Dosage: 8 GM )4 GM, 2 IN 1 D), ORAL
     Route: 048
     Dates: start: 20060601, end: 20070423

REACTIONS (5)
  - Disorientation [None]
  - Loss of consciousness [None]
  - Concussion [None]
  - Sudden onset of sleep [None]
  - Head injury [None]
